FAERS Safety Report 5392819-8 (Version None)
Quarter: 2007Q3

REPORT INFORMATION
  Report Type: 
  Country: None (occurrence: None)
  Receive Date: 20070720
  Receipt Date: 20070712
  Transmission Date: 20080115
  Serious: Yes (Life-Threatening, Hospitalization, Other)
  Sender: FDA-Public Use
  Company Number: MX-PFIZER INC-2007055608

PATIENT
  Sex: Female
  Weight: 49 kg

DRUGS (5)
  1. PREGABALIN (EPILEPSY) [Suspect]
     Indication: EPILEPSY
     Route: 048
     Dates: start: 20070403, end: 20070705
  2. PREDNISON [Concomitant]
     Route: 048
     Dates: start: 20070622, end: 20070705
  3. NIMODIPINE [Concomitant]
     Route: 048
     Dates: start: 20070622, end: 20070705
  4. FLUOXETINE [Concomitant]
     Route: 048
     Dates: start: 20060101, end: 20070705
  5. DIFENIDOL [Concomitant]
     Route: 048
     Dates: start: 20070622, end: 20070622

REACTIONS (4)
  - LABYRINTHITIS [None]
  - PNEUMONIA [None]
  - SINUSITIS [None]
  - STATUS EPILEPTICUS [None]
